FAERS Safety Report 8432498-6 (Version None)
Quarter: 2012Q2

REPORT INFORMATION
  Report Type: 
  Country: None (occurrence: None)
  Receive Date: 20120613
  Receipt Date: 20120607
  Transmission Date: 20120825
  Serious: Yes (Other)
  Sender: FDA-Public Use
  Company Number: PHHY2011US19971

PATIENT
  Sex: Female

DRUGS (11)
  1. PERCOCET [Concomitant]
     Dosage: 325 MG, UNK
  2. VITAMIN D [Concomitant]
  3. VITAMIN B COMPLEX CAP [Concomitant]
  4. BACLOFEN [Concomitant]
     Dosage: 60 MG, DAILY
  5. LAMICTAL [Concomitant]
     Dosage: 150 MG, UNK
  6. GILENYA [Suspect]
     Indication: MULTIPLE SCLEROSIS
     Dosage: 0.5 MG, DAILY
     Route: 048
     Dates: start: 20110210
  7. CRESTOR [Suspect]
     Dates: start: 20110901
  8. FLEXERIL [Concomitant]
     Dosage: 10 MG, UNK
  9. AMBIEN [Concomitant]
     Dosage: 10 MG, UNK
     Route: 048
  10. CITALOPRAM HYDROBROMIDE [Concomitant]
     Dosage: 40 MG, UNK
  11. ZOFRAN [Concomitant]
     Dosage: 4 MG, UNK

REACTIONS (4)
  - ARTHRALGIA [None]
  - DEPRESSION [None]
  - MYALGIA [None]
  - BLINDNESS TRANSIENT [None]
